FAERS Safety Report 8843437 (Version 1)
Quarter: 2012Q4

REPORT INFORMATION
  Report Type: 
  Country: US (occurrence: US)
  Receive Date: 20121016
  Receipt Date: 20121016
  Transmission Date: 20130627
  Serious: Yes (Hospitalization, Other)
  Sender: FDA-Public Use
  Company Number: US-ROCHE-GNE268607

PATIENT
  Age: 51 Year
  Sex: Female

DRUGS (2)
  1. NUTROPIN [Suspect]
     Indication: GROWTH HORMONE DEFICIENCY
     Dosage: 10 mg, qd
     Route: 058
     Dates: start: 2004
  2. NUTROPIN [Suspect]
     Indication: DWARFISM

REACTIONS (4)
  - Lung infection [Recovered/Resolved]
  - Coma [Unknown]
  - Dyspnoea [Unknown]
  - Bone pain [Unknown]
